FAERS Safety Report 7323116-9 (Version None)
Quarter: 2011Q1

REPORT INFORMATION
  Report Type: 
  Country: None (occurrence: None)
  Receive Date: 20110301
  Receipt Date: 20100712
  Transmission Date: 20110831
  Serious: Yes (Other)
  Sender: FDA-Public Use
  Company Number: US-BAYER-201016107NA

PATIENT
  Sex: Female
  Weight: 77 kg

DRUGS (2)
  1. YAZ [Suspect]
     Dosage: UNK
     Dates: start: 20040101, end: 20070101
  2. YASMIN [Suspect]
     Dosage: UNK
     Dates: start: 20040101, end: 20070101

REACTIONS (1)
  - CEREBROVASCULAR ACCIDENT [None]
